FAERS Safety Report 17886643 (Version 1)
Quarter: 2020Q2

REPORT INFORMATION
  Report Type: Spontaneous
  Country: DE (occurrence: DE)
  Receive Date: 20200611
  Receipt Date: 20200611
  Transmission Date: 20200714
  Serious: Yes (Other)
  Sender: FDA-Public Use
  Company Number: NVSC2020DE162550

PATIENT
  Sex: Male

DRUGS (2)
  1. DEXAMETASON [Concomitant]
     Active Substance: DEXAMETHASONE
     Indication: CATARACT OPERATION COMPLICATION
     Dosage: UNK
     Route: 065
     Dates: start: 20200604
  2. NEVANAC [Suspect]
     Active Substance: NEPAFENAC
     Indication: CATARACT OPERATION COMPLICATION
     Dosage: UNK
     Route: 047
     Dates: start: 20200607, end: 20200607

REACTIONS (6)
  - Bradycardia [Unknown]
  - Visual field defect [Not Recovered/Not Resolved]
  - Hypothermia [Unknown]
  - Blood pressure decreased [Unknown]
  - Dizziness [Unknown]
  - Vitreous floaters [Not Recovered/Not Resolved]

NARRATIVE: CASE EVENT DATE: 20200607
